FAERS Safety Report 7778144-6 (Version None)
Quarter: 2011Q3

REPORT INFORMATION
  Report Type: 
  Country: None (occurrence: None)
  Receive Date: 20110926
  Receipt Date: 20110125
  Transmission Date: 20111222
  Serious: No
  Sender: FDA-Public Use
  Company Number: US-MUTUAL PHARMACEUTICAL COMPANY, INC.-BCTM20110006

PATIENT
  Age: 47 Year
  Sex: Female
  Weight: 72.6 kg

DRUGS (13)
  1. ATENOLOL [Concomitant]
     Indication: HYPERTENSION
     Route: 065
  2. OMEPRAZOLE [Concomitant]
     Indication: GASTROOESOPHAGEAL REFLUX DISEASE
     Route: 065
  3. BACTRIM [Suspect]
     Indication: COUGH
     Route: 065
     Dates: start: 20101201
  4. DEPAKOTE [Concomitant]
     Indication: BIPOLAR DISORDER
     Route: 065
  5. LYRICA [Concomitant]
     Indication: FIBROMYALGIA
     Route: 065
  6. TRAZODONE HYDROCHLORIDE [Concomitant]
     Indication: INSOMNIA
     Route: 065
  7. CELEXA [Concomitant]
     Indication: DEPRESSION
     Route: 065
  8. BACTRIM [Suspect]
     Indication: NASOPHARYNGITIS
  9. CHANTIX [Suspect]
     Indication: SMOKING CESSATION THERAPY
     Route: 048
     Dates: start: 20101218, end: 20110110
  10. HYDROCODONE 10/500 MG [Concomitant]
     Indication: PAIN
     Route: 065
  11. MELOXICAM [Concomitant]
     Indication: MUSCLE DISORDER
     Route: 065
  12. PROAIR HFA [Concomitant]
     Indication: DYSPNOEA
     Route: 065
  13. VISTARIL [Concomitant]
     Indication: ANXIETY
     Route: 065

REACTIONS (4)
  - ARTHRALGIA [None]
  - URTICARIA [None]
  - POLYMENORRHOEA [None]
  - DYSSTASIA [None]
